FAERS Safety Report 6418379-8 (Version None)
Quarter: 2009Q4

REPORT INFORMATION
  Report Type: 
  Country: None (occurrence: None)
  Receive Date: 20091028
  Receipt Date: 20091022
  Transmission Date: 20100525
  Serious: Yes (Hospitalization, Other)
  Sender: FDA-Public Use
  Company Number: HQWYE644329APR04

PATIENT
  Sex: Female

DRUGS (4)
  1. PREMPRO [Suspect]
     Indication: HORMONE REPLACEMENT THERAPY
     Dosage: UNKNOWN; FREQUENCY UNKNOWN
     Route: 048
     Dates: start: 19960522, end: 20010901
  2. PROVERA [Suspect]
     Indication: HORMONE REPLACEMENT THERAPY
     Dosage: 10 MG; FREQUENCY UNKNOWN
     Dates: start: 19901101, end: 19960522
  3. ESTRATAB [Suspect]
  4. PREMARIN [Suspect]
     Indication: OESTROGEN REPLACEMENT THERAPY
     Dosage: 0.625 MG; FREQUENCY UNKNOWN
     Route: 048
     Dates: start: 19930607, end: 19960522

REACTIONS (1)
  - BREAST CANCER METASTATIC [None]
